FAERS Safety Report 23733122 (Version 1)
Quarter: 2024Q2

REPORT INFORMATION
  Report Type: Spontaneous
  Country: AU (occurrence: AU)
  Receive Date: 20240411
  Receipt Date: 20240411
  Transmission Date: 20240716
  Serious: Yes (Hospitalization)
  Sender: FDA-Public Use
  Company Number: AU-PFIZER INC-202400073287

PATIENT
  Age: 3 Year
  Sex: Female

DRUGS (1)
  1. ZITHROMAX [Suspect]
     Active Substance: AZITHROMYCIN DIHYDRATE
     Dosage: 200 MG/5 ML

REACTIONS (6)
  - Rhinovirus infection [Unknown]
  - Pyrexia [Unknown]
  - Decreased appetite [Unknown]
  - Accidental exposure to product by child [Unknown]
  - Exposure via skin contact [Unknown]
  - Product packaging issue [Unknown]
